FAERS Safety Report 10347419 (Version 4)
Quarter: 2014Q4

REPORT INFORMATION
  Report Type: Spontaneous
  Country: IT (occurrence: IT)
  Receive Date: 20140729
  Receipt Date: 20141006
  Transmission Date: 20150528
  Serious: Yes (Other)
  Sender: FDA-Public Use
  Company Number: IT-PFIZER INC-2014207693

PATIENT
  Age: 49 Year
  Sex: Male

DRUGS (14)
  1. HOLOXAN [Interacting]
     Active Substance: IFOSFAMIDE
     Indication: SARCOMA
     Dosage: 5400 MG, DAILY
     Route: 042
     Dates: start: 20140530, end: 20140602
  2. PANTOPRAZOLE [Concomitant]
     Active Substance: PANTOPRAZOLE SODIUM
     Dosage: 40 MG, DAILY
     Route: 048
  3. FUROSEMIDE. [Concomitant]
     Active Substance: FUROSEMIDE
     Dosage: 40 MG, UNK
     Route: 042
     Dates: start: 20140522, end: 20140602
  4. RANITIDINE [Concomitant]
     Active Substance: RANITIDINE\RANITIDINE HYDROCHLORIDE
     Indication: PREMEDICATION
     Dosage: 100 MG, UNK
     Route: 042
     Dates: start: 20140530, end: 20140602
  5. MORPHINE HYDROCHLORIDE [Interacting]
     Active Substance: MORPHINE HYDROCHLORIDE
     Dosage: 80 MG, DAILY
     Route: 042
     Dates: start: 20140522, end: 20140604
  6. UROMITEXAN [Concomitant]
     Active Substance: MESNA
     Indication: SARCOMA
     Dosage: 5400 MG, UNK
     Route: 042
     Dates: start: 20140530, end: 20140602
  7. KYTRIL [Concomitant]
     Active Substance: GRANISETRON HYDROCHLORIDE
     Indication: PREMEDICATION
     Dosage: 3 MG, UNK
     Route: 042
     Dates: start: 20140530, end: 20140602
  8. FUROSEMIDE. [Concomitant]
     Active Substance: FUROSEMIDE
     Dosage: 50 MG, 2X/DAY
  9. LYRICA [Suspect]
     Active Substance: PREGABALIN
     Indication: PAIN MANAGEMENT
     Dosage: 225 MG, DAILY
     Route: 048
     Dates: start: 20140516, end: 20140604
  10. MORPHINE HYDROCHLORIDE [Interacting]
     Active Substance: MORPHINE HYDROCHLORIDE
     Indication: PAIN MANAGEMENT
     Dosage: 10 MG 5 VIALS
  11. AMITRIPTYLINE [Concomitant]
     Active Substance: AMITRIPTYLINE
     Dosage: ^X GTT / DAY^
     Route: 048
  12. SOLDESAM [Concomitant]
     Active Substance: DEXAMETHASONE
     Indication: PREMEDICATION
     Dosage: 8 MG, DAILY
     Route: 042
     Dates: start: 20140530, end: 20140602
  13. IBUPROFEN. [Concomitant]
     Active Substance: IBUPROFEN
     Dosage: 600 MG, 2X/DAY
     Route: 048
  14. ENOXAPARIN [Concomitant]
     Active Substance: ENOXAPARIN
     Dosage: 6000 IU, DAILY
     Route: 058

REACTIONS (4)
  - Drug interaction [Unknown]
  - Toxicity to various agents [Unknown]
  - Sopor [Recovered/Resolved]
  - Myoclonus [Recovered/Resolved]

NARRATIVE: CASE EVENT DATE: 20140602
